FAERS Safety Report 23662934 (Version 1)
Quarter: 2024Q1

REPORT INFORMATION
  Report Type: Spontaneous
  Country: US (occurrence: None)
  Receive Date: 20240322
  Receipt Date: 20240322
  Transmission Date: 20240410
  Serious: Yes (Hospitalization)
  Sender: FDA-Public Use
  Company Number: None

PATIENT
  Sex: Male
  Weight: 99.2 kg

DRUGS (1)
  1. CYTARABINE\DAUNORUBICIN [Suspect]
     Active Substance: CYTARABINE\DAUNORUBICIN

REACTIONS (3)
  - Febrile neutropenia [None]
  - Bacterial infection [None]
  - Escherichia test positive [None]

NARRATIVE: CASE EVENT DATE: 20240310
